FAERS Safety Report 9074669 (Version 1)
Quarter: 2013Q1

REPORT INFORMATION
  Report Type: Report from Study
  Country: US (occurrence: US)
  Receive Date: 20130128
  Receipt Date: 20130128
  Transmission Date: 20140127
  Serious: No
  Sender: FDA-Public Use
  Company Number: US-ABBOTT-12P-163-0920689-00

PATIENT
  Sex: Male

DRUGS (13)
  1. HUMIRA 40 MG/0.8 ML PEN [Suspect]
     Indication: CROHN^S DISEASE
     Dosage: 160 MG LOADING DOSE
     Dates: start: 20120316
  2. ALLOPURINOL [Concomitant]
     Indication: GOUT
  3. ATORVASTATIN [Concomitant]
     Indication: BLOOD CHOLESTEROL INCREASED
  4. CARDIOBID [Concomitant]
     Indication: PRODUCT USED FOR UNKNOWN INDICATION
  5. CHOLESTID [Concomitant]
     Indication: BLOOD CHOLESTEROL INCREASED
  6. COUMADIN [Concomitant]
     Indication: THROMBOSIS PROPHYLAXIS
  7. FUROSEMIDE [Concomitant]
     Indication: FLUID RETENTION
  8. GABAPENTIN [Concomitant]
     Indication: PRODUCT USED FOR UNKNOWN INDICATION
  9. GLYPIZIDE [Concomitant]
     Indication: DIABETES MELLITUS
  10. HUMALOG [Concomitant]
     Indication: DIABETES MELLITUS
  11. LANTUS [Concomitant]
     Indication: DIABETES MELLITUS
  12. NEXIUM [Concomitant]
     Indication: GASTROOESOPHAGEAL REFLUX DISEASE
  13. NITROGLYCERINE [Concomitant]
     Indication: CHEST PAIN

REACTIONS (1)
  - Injection site pain [Not Recovered/Not Resolved]
